FAERS Safety Report 6049940-0 (Version None)
Quarter: 2009Q1

REPORT INFORMATION
  Report Type: 
  Country: None (occurrence: None)
  Receive Date: 20090125
  Receipt Date: 20090119
  Transmission Date: 20090719
  Serious: Yes (Hospitalization, Disabling, Other)
  Sender: FDA-Public Use
  Company Number: CA-BAYER-200911181NA

PATIENT
  Age: 49 Year
  Sex: Male

DRUGS (6)
  1. TRASYLOL [Suspect]
     Indication: DRUG USE FOR UNKNOWN INDICATION
     Dosage: UNIT DOSE: 50 ML
     Route: 042
     Dates: start: 20081224
  2. FACTOR VII [Concomitant]
     Indication: COAGULOPATHY
  3. PLATELETS [Concomitant]
     Indication: COAGULOPATHY
  4. FRESH FROZEN PLASMA [Concomitant]
     Indication: COAGULOPATHY
  5. RED BLOOD CELLS [Concomitant]
     Indication: COAGULOPATHY
  6. DDAVP [Concomitant]
     Indication: COAGULOPATHY

REACTIONS (2)
  - PERIPHERAL ISCHAEMIA [None]
  - RENAL FAILURE ACUTE [None]
